FAERS Safety Report 7732396-7 (Version None)
Quarter: 2011Q3

REPORT INFORMATION
  Report Type: 
  Country: None (occurrence: None)
  Receive Date: 20110906
  Receipt Date: 20110902
  Transmission Date: 20111222
  Serious: Yes (Other)
  Sender: FDA-Public Use
  Company Number: CN-PFIZER INC-2011191315

PATIENT
  Sex: Male

DRUGS (1)
  1. LIPITOR [Suspect]
     Dosage: 40MG, 1X/DAY
     Route: 048
     Dates: start: 20110501, end: 20110601

REACTIONS (3)
  - BLOOD CHOLESTEROL INCREASED [None]
  - TRANSAMINASES INCREASED [None]
  - JAUNDICE [None]
